FAERS Safety Report 18148853 (Version 1)
Quarter: 2020Q3

REPORT INFORMATION
  Report Type: Spontaneous
  Country: DE (occurrence: DE)
  Receive Date: 20200814
  Receipt Date: 20200814
  Transmission Date: 20201103
  Serious: Yes (Other)
  Sender: FDA-Public Use
  Company Number: DE-JNJFOC-20200808057

PATIENT
  Age: 8 Week
  Sex: Male

DRUGS (5)
  1. OBSTINOL [Suspect]
     Active Substance: CALCIUM PANTOTHENATE\DANTHRON
     Indication: PRODUCT USED FOR UNKNOWN INDICATION
     Dosage: INTAKE OF MOTHER POSTPARTALLY
     Route: 063
  2. ROTAVIRUS VACCINE [Suspect]
     Active Substance: HUMAN ROTAVIRUS A
     Indication: PRODUCT USED FOR UNKNOWN INDICATION
     Route: 064
  3. MACROGOL [Suspect]
     Active Substance: POLYETHYLENE GLYCOLS
     Indication: PRODUCT USED FOR UNKNOWN INDICATION
     Dosage: INTAKE OF MOTHER POSTPARTALLY
     Route: 063
  4. IBUPROFEN. [Suspect]
     Active Substance: IBUPROFEN
     Indication: PRODUCT USED FOR UNKNOWN INDICATION
     Dosage: 2X 400 MG, APPROX. 3?4 DAYS
     Route: 064
  5. FENUGREEK                          /01475701/ [Suspect]
     Active Substance: HERBALS
     Indication: PRODUCT USED FOR UNKNOWN INDICATION
     Dosage: 3X DAILY APPROX. 2?3 WEEKS PRIOR TO BIRTH
     Route: 064

REACTIONS (5)
  - Hypovitaminosis [Unknown]
  - Cholestasis [Unknown]
  - Transaminases increased [Recovered/Resolved]
  - Liver injury [Unknown]
  - Foetal exposure during pregnancy [Unknown]

NARRATIVE: CASE EVENT DATE: 2020
